FAERS Safety Report 13451751 (Version 1)
Quarter: 2017Q2

REPORT INFORMATION
  Report Type: Spontaneous
  Country: US (occurrence: US)
  Receive Date: 20170418
  Receipt Date: 20170418
  Transmission Date: 20170830
  Serious: Yes (Other)
  Sender: FDA-Public Use
  Company Number: None

PATIENT
  Age: 61 Year
  Sex: Male
  Weight: 70.82 kg

DRUGS (5)
  1. CARVEDILOL. [Concomitant]
     Active Substance: CARVEDILOL
  2. SPIRONOLACTONE. [Concomitant]
     Active Substance: SPIRONOLACTONE
  3. FUROSEMIDE. [Concomitant]
     Active Substance: FUROSEMIDE
  4. SYMBICORT [Suspect]
     Active Substance: BUDESONIDE\FORMOTEROL FUMARATE DIHYDRATE
     Indication: RESPIRATORY DISORDER
     Dosage: 1 PUFF TWO TIMES DAILY, MOUTH
     Route: 048
     Dates: start: 200005, end: 200006
  5. ENALARIL MALEATE [Concomitant]

REACTIONS (4)
  - Eye disorder [None]
  - Eye pain [None]
  - Eye injury [None]
  - Visual impairment [None]

NARRATIVE: CASE EVENT DATE: 200009
